FAERS Safety Report 8238830 (Version 5)
Quarter: 2012Q4

REPORT INFORMATION
  Report Type: 
  Country: US (occurrence: US)
  Receive Date: 20111110
  Receipt Date: 20121010
  Transmission Date: 20130627
  Serious: Yes (Hospitalization)
  Sender: FDA-Public Use
  Company Number: US-PFIZER INC-2011271897

PATIENT
  Age: 85 Year
  Sex: Female

DRUGS (2)
  1. XALKORI [Suspect]
     Indication: LUNG NEOPLASM MALIGNANT
     Dosage: 250 mg, UNK
     Dates: start: 20111028
  2. XALKORI [Suspect]
     Dosage: 250 mg, 2x/day
     Dates: start: 20120622

REACTIONS (12)
  - Hypertension [Unknown]
  - Nausea [Unknown]
  - Vomiting [Unknown]
  - Pain in extremity [Unknown]
  - Back pain [Unknown]
  - Productive cough [Unknown]
  - Dizziness postural [Unknown]
  - Constipation [Unknown]
  - Arthralgia [Unknown]
  - Blood glucose increased [Unknown]
  - Stomatitis [Unknown]
  - Dysgeusia [Unknown]
